FAERS Safety Report 8957357 (Version 1)
Quarter: 2012Q4

REPORT INFORMATION
  Report Type: 
  Country: US (occurrence: US)
  Receive Date: 20121210
  Receipt Date: 20121210
  Transmission Date: 20130627
  Serious: Yes (Hospitalization, Other)
  Sender: FDA-Public Use
  Company Number: US-ROCHE-727350

PATIENT
  Age: 40 None
  Sex: Female
  Weight: 120 kg

DRUGS (2)
  1. ACCUTANE [Suspect]
     Indication: SUBCUTANEOUS ABSCESS
     Route: 065
  2. TYLENOL [Concomitant]

REACTIONS (6)
  - Colitis ulcerative [Unknown]
  - Gastrointestinal injury [Unknown]
  - Inflammatory bowel disease [Unknown]
  - Intestinal obstruction [Unknown]
  - Depression [Unknown]
  - Large intestine polyp [Unknown]
